FAERS Safety Report 12650892 (Version 1)
Quarter: 2016Q3

REPORT INFORMATION
  Report Type: Spontaneous
  Country: None (occurrence: None)
  Receive Date: 20160812
  Receipt Date: 20160812
  Transmission Date: 20161109
  Serious: No
  Sender: FDA-Public Use
  Company Number: None

PATIENT
  Age: 39 Year
  Sex: Female
  Weight: 86.18 kg

DRUGS (1)
  1. SOOLANTRA [Suspect]
     Active Substance: IVERMECTIN
     Indication: ROSACEA
     Dosage: AT BEDTIME APPLIED TO A SURFACE, USUALLY THE SKIN
     Dates: start: 20160501, end: 20160810

REACTIONS (1)
  - Burning sensation [None]

NARRATIVE: CASE EVENT DATE: 20160810
